FAERS Safety Report 19740927 (Version 1)
Quarter: 2021Q3

REPORT INFORMATION
  Report Type: Report from Study
  Country: US (occurrence: US)
  Receive Date: 20210824
  Receipt Date: 20210824
  Transmission Date: 20211014
  Serious: Yes (Hospitalization)
  Sender: FDA-Public Use
  Company Number: US-TAKEDA-2020TUS036627

PATIENT
  Age: 64 Year
  Sex: Female
  Weight: 84 kg

DRUGS (3)
  1. BRIGATINIB [Suspect]
     Active Substance: BRIGATINIB
     Dosage: 90 MILLIGRAM
     Route: 065
  2. BRIGATINIB [Suspect]
     Active Substance: BRIGATINIB
     Indication: LUNG NEOPLASM MALIGNANT
     Dosage: 90 MILLIGRAM, QD
     Route: 048
     Dates: start: 20200822
  3. BRIGATINIB [Suspect]
     Active Substance: BRIGATINIB
     Indication: LUNG CARCINOMA CELL TYPE UNSPECIFIED STAGE IV
     Dosage: 180 MILLIGRAM, QD
     Route: 048
     Dates: start: 202009

REACTIONS (8)
  - Weight increased [Unknown]
  - Grip strength decreased [Unknown]
  - Vomiting [Unknown]
  - Cough [Recovered/Resolved]
  - Fatigue [Not Recovered/Not Resolved]
  - Illness [Unknown]
  - Blood pressure increased [Unknown]
  - Product dose omission issue [Unknown]

NARRATIVE: CASE EVENT DATE: 20200822
